FAERS Safety Report 7853006-4 (Version None)
Quarter: 2011Q3

REPORT INFORMATION
  Report Type: 
  Country: None (occurrence: None)
  Receive Date: 20110914
  Receipt Date: 20101115
  Transmission Date: 20111222
  Serious: Yes (Hospitalization)
  Sender: FDA-Public Use
  Company Number: 1000017325

PATIENT
  Age: 64 Year
  Sex: Male

DRUGS (8)
  1. DECADRON [Suspect]
     Indication: OEDEMA
     Dosage: 6 MG (6 MG,1 IN 1 D),ORAL
     Route: 048
     Dates: end: 20101105
  2. LEVOTHYROXINE (LEVOTHYROXINE) (LEVOTHYROXINE) [Concomitant]
  3. METOPROLOL SUCCINATE [Concomitant]
  4. CELEXA [Suspect]
     Indication: DEPRESSION
     Dosage: (1 IN 1 D),ORAL
     Route: 048
     Dates: start: 20101107, end: 20101109
  5. OMEPRAZOLE [Concomitant]
  6. DECADRON [Suspect]
     Indication: OEDEMA
     Dosage: 12 MG (6 MG,2 IN 1 D),ORAL ; 6 MG (6 MG,1 IN 1 D),ORAL
     Route: 048
     Dates: start: 20101106, end: 20101114
  7. DECADRON [Suspect]
     Indication: OEDEMA
     Dosage: 12 MG (6 MG,2 IN 1 D),ORAL ; 6 MG (6 MG,1 IN 1 D),ORAL
     Route: 048
     Dates: start: 20101115
  8. XANAX (ALPRAZOLAM) (0.25 MILLIGRAM, TABLETS) (ALPRAZOLAM) [Concomitant]

REACTIONS (4)
  - AGITATION [None]
  - ASTHENIA [None]
  - SUICIDAL IDEATION [None]
  - TREMOR [None]
